FAERS Safety Report 8120152-X (Version None)
Quarter: 2012Q1

REPORT INFORMATION
  Report Type: 
  Country: None (occurrence: None)
  Receive Date: 20120207
  Receipt Date: 20120104
  Transmission Date: 20120608
  Serious: Yes (Hospitalization)
  Sender: FDA-Public Use
  Company Number: US-BAYER-2011-080743

PATIENT
  Age: 37 Year
  Sex: Female

DRUGS (10)
  1. NSAID'S [Concomitant]
     Dosage: AS NEEDED
  2. YAZ [Suspect]
     Indication: CONTRACEPTION
     Dosage: UNK
     Dates: start: 20070501, end: 20090701
  3. ANTIMIGRAINE PREPARATIONS [Concomitant]
     Dosage: UNK
     Dates: start: 20040101
  4. YAZ [Suspect]
     Indication: PREMENSTRUAL SYNDROME
  5. ANTIHYPERTENSIVES [Concomitant]
     Indication: BLOOD PRESSURE ABNORMAL
  6. TYLENOL ALLERGY SINUS [Concomitant]
     Indication: CHRONIC SINUSITIS
     Dosage: UNK
     Dates: end: 20090715
  7. LUNESTA [Concomitant]
     Indication: SLEEP DISORDER
     Dosage: 3 MG, AS NEEDED
     Dates: end: 20090715
  8. ZOMIG [Concomitant]
     Indication: MIGRAINE
     Dosage: UNK
     Dates: end: 20090501
  9. DIOVAN [Concomitant]
  10. ANTIBIOTICS [Concomitant]
     Dosage: AS NEEDED

REACTIONS (13)
  - BILIARY DYSKINESIA [None]
  - EMOTIONAL DISTRESS [None]
  - PAIN [None]
  - ABDOMINAL DISTENSION [None]
  - ABDOMINAL PAIN [None]
  - PROCEDURAL PAIN [None]
  - DYSPEPSIA [None]
  - FEAR [None]
  - ANXIETY [None]
  - INJURY [None]
  - CHOLECYSTITIS ACUTE [None]
  - GALLBLADDER DISORDER [None]
  - PSYCHOLOGICAL TRAUMA [None]
